FAERS Safety Report 10258065 (Version 1)
Quarter: 2014Q2

REPORT INFORMATION
  Report Type: Spontaneous
  Country: US (occurrence: None)
  Receive Date: 20140623
  Receipt Date: 20140623
  Transmission Date: 20141212
  Serious: Yes (Hospitalization)
  Sender: FDA-Public Use
  Company Number: UNT-2014-002035

PATIENT
  Age: 71 Year
  Sex: Male
  Weight: 75.7 kg

DRUGS (3)
  1. REMODULIN (TREPROSTINIL SODIUM) INJECTION, 2.5MG/ML [Suspect]
     Indication: COR PULMONALE CHRONIC
     Route: 041
     Dates: start: 20120616
  2. REMODULIN (TREPROSTINIL SODIUM) INJECTION, 2.5MG/ML [Suspect]
     Indication: PULMONARY ARTERIAL HYPERTENSION
     Route: 041
     Dates: start: 20120616
  3. SILDENAFIL (SILDENAFIL) [Concomitant]

REACTIONS (1)
  - Renal failure acute [None]
